FAERS Safety Report 4575899-9 (Version None)
Quarter: 2005Q1

REPORT INFORMATION
  Report Type: 
  Country: None (occurrence: None)
  Receive Date: 20050207
  Receipt Date: 20041214
  Transmission Date: 20050727
  Serious: Yes (Hospitalization, Other)
  Sender: FDA-Public Use
  Company Number: 2004S1003769

PATIENT
  Age: 65 Year
  Sex: Male
  Weight: 113 kg

DRUGS (5)
  1. VINORELBINE [Suspect]
     Indication: NON-SMALL CELL LUNG CANCER
     Dosage: 60 MG(30 MG/M2, DAYS 1,8,15
     Dates: start: 20041231, end: 20040408
  2. LANOXIN [Suspect]
     Indication: CARDIAC FAILURE CONGESTIVE
     Dosage: 62.5 MCG, PM, 250MG AM, ORAL
     Route: 048
     Dates: end: 20040501
  3. PRAZOSIN 1MG [Suspect]
     Indication: HYPERTENSION
     Dosage: 1MG BID, ORAL
     Route: 048
     Dates: start: 19880101, end: 20040429
  4. FUROSEMIDE [Suspect]
     Indication: CARDIAC FAILURE CONGESTIVE
     Dosage: 40 MG, QD, ORAL
     Route: 048
     Dates: end: 20040506
  5. METOPROLOL [Concomitant]

REACTIONS (7)
  - CARDIAC DISORDER [None]
  - ELECTROCARDIOGRAM ABNORMAL [None]
  - FALL [None]
  - ORTHOSTATIC HYPOTENSION [None]
  - RIB FRACTURE [None]
  - SYNCOPE [None]
  - VENTRICULAR DYSFUNCTION [None]
